FAERS Safety Report 15624579 (Version 4)
Quarter: 2019Q1

REPORT INFORMATION
  Report Type: Report from Study
  Country: TW (occurrence: TW)
  Receive Date: 20181116
  Receipt Date: 20190125
  Transmission Date: 20190417
  Serious: Yes (Hospitalization, Other)
  Sender: FDA-Public Use
  Company Number: TW-INCYTE CORPORATION-2018IN011273

PATIENT

DRUGS (1)
  1. JAKAVI [Suspect]
     Active Substance: RUXOLITINIB
     Indication: MYELOFIBROSIS
     Dosage: 5 MG, BID
     Route: 048
     Dates: start: 20180823

REACTIONS (26)
  - Cardiac failure congestive [Unknown]
  - Lung infiltration [Recovered/Resolved]
  - C-reactive protein increased [Unknown]
  - Cough [Recovered/Resolved]
  - Pyrexia [Recovered/Resolved]
  - Platelet count decreased [Recovered/Resolved]
  - Pneumonia [Recovered/Resolved]
  - Urinary tract infection [Recovered/Resolved]
  - Wound abscess [Not Recovered/Not Resolved]
  - Dysuria [Unknown]
  - Hyperuricaemia [Unknown]
  - Carbuncle [Recovering/Resolving]
  - Haemolytic anaemia [Unknown]
  - Urine output decreased [Unknown]
  - Thalassaemia [Unknown]
  - Chronic kidney disease [Recovered/Resolved]
  - Flank pain [Recovering/Resolving]
  - Malaise [Not Recovered/Not Resolved]
  - Hypertension [Unknown]
  - Acute kidney injury [Recovered/Resolved]
  - Haemoglobin decreased [Recovering/Resolving]
  - Hepatosplenomegaly [Not Recovered/Not Resolved]
  - Osteosclerosis [Unknown]
  - Blood creatinine increased [Recovered/Resolved]
  - Haemochromatosis [Unknown]
  - White blood cell count decreased [Not Recovered/Not Resolved]

NARRATIVE: CASE EVENT DATE: 20181018
